FAERS Safety Report 4424674-4 (Version None)
Quarter: 2004Q3

REPORT INFORMATION
  Report Type: 
  Country: None (occurrence: None)
  Receive Date: 20040805
  Receipt Date: 20040720
  Transmission Date: 20050211
  Serious: Yes (Hospitalization)
  Sender: FDA-Public Use
  Company Number: 2004-BP-05280NB

PATIENT
  Age: 85 Year
  Sex: Female

DRUGS (7)
  1. BI-SIFROL TABLETS (PRAMIPEXOLE DIHYDROCHLORIDE) (TA) [Suspect]
     Indication: PARKINSON'S DISEASE
     Dosage: 0.5 MG
     Route: 048
     Dates: start: 20040617, end: 20040626
  2. BUP-4 (PROPIVERINE HYDROCHLORIDE)(TA) [Concomitant]
  3. MEVALOTIN (PRAVASTATIN SODIUM) (TA) [Concomitant]
  4. NEODOPASTON (TA) [Concomitant]
  5. SYMMETREL (AMANTADINE HYDROCHLORIDE) (TA) [Concomitant]
  6. NATRIX (INDAPAMIDE) (TA) [Concomitant]
  7. DOPS (DROXIDOPA)(KA) [Concomitant]

REACTIONS (4)
  - ANOREXIA [None]
  - DEPRESSED LEVEL OF CONSCIOUSNESS [None]
  - INAPPROPRIATE ANTIDIURETIC HORMONE SECRETION [None]
  - PERSONALITY CHANGE [None]
